FAERS Safety Report 7478936-7 (Version None)
Quarter: 2011Q2

REPORT INFORMATION
  Report Type: 
  Country: None (occurrence: None)
  Receive Date: 20110513
  Receipt Date: 20110505
  Transmission Date: 20111010
  Serious: Yes (Other)
  Sender: FDA-Public Use
  Company Number: US-US-EMD SERONO, INC.-7047140

PATIENT
  Sex: Male

DRUGS (4)
  1. CITALOPRAM HYDROBROMIDE [Concomitant]
     Indication: ABNORMAL BEHAVIOUR
  2. REBIF [Suspect]
     Indication: MULTIPLE SCLEROSIS
     Route: 058
     Dates: start: 20100910
  3. CITALOPRAM HYDROBROMIDE [Concomitant]
  4. ABILIFY [Concomitant]
     Indication: ABNORMAL BEHAVIOUR

REACTIONS (6)
  - FATIGUE [None]
  - CEREBRAL ATROPHY [None]
  - INJECTION SITE PAIN [None]
  - TREMOR [None]
  - ANGER [None]
  - INJECTION SITE ERYTHEMA [None]
